FAERS Safety Report 23908312 (Version 1)
Quarter: 2024Q2

REPORT INFORMATION
  Report Type: Spontaneous
  Country: FR (occurrence: FR)
  Receive Date: 20240528
  Receipt Date: 20240528
  Transmission Date: 20240716
  Serious: Yes (Hospitalization)
  Sender: FDA-Public Use
  Company Number: None

PATIENT
  Age: 69 Year
  Sex: Female
  Weight: 39.7 kg

DRUGS (15)
  1. CAPECITABINE [Suspect]
     Active Substance: CAPECITABINE
     Indication: Neoplasm malignant
     Dosage: 1650 MG 2X/DAY, BID?DAILY DOSE: 3300 MILLIGRAM
     Route: 048
     Dates: start: 201811, end: 20210531
  2. COMIRNATY (TOZINAMERAN) [Suspect]
     Active Substance: TOZINAMERAN
     Indication: COVID-19 immunisation
     Dosage: D1
     Dates: start: 20210520, end: 20210520
  3. ARIMIDEX [Suspect]
     Active Substance: ANASTROZOLE
     Indication: Breast cancer
     Dosage: DAILY DOSE: 1 MILLIGRAM
     Route: 048
     Dates: start: 201808, end: 20210601
  4. SMECTA [Concomitant]
     Active Substance: MONTMORILLONITE
     Dosage: 1 SACHET 3 TIMES A DAY, TID?DAILY DOSE: 3 DOSAGE FORM
     Route: 048
     Dates: start: 20210531
  5. ACETAMINOPHEN [Concomitant]
     Active Substance: ACETAMINOPHEN
     Dosage: 1 G 3 TIMES DAILY, TID?DAILY DOSE: 3 GRAM
     Dates: start: 20210531
  6. XGEVA [Concomitant]
     Active Substance: DENOSUMAB
     Route: 058
  7. LANSOPRAZOLE [Concomitant]
     Active Substance: LANSOPRAZOLE
     Dosage: DAILY DOSE: 15 MILLIGRAM
     Route: 048
     Dates: start: 20210531
  8. INNOHEP [Concomitant]
     Active Substance: TINZAPARIN SODIUM
     Dosage: DAILY DOSE: 7000 IU (INTERNATIONAL UNIT)
  9. PHLOROGLUCINOL [Concomitant]
     Active Substance: PHLOROGLUCINOL
     Dosage: DAILY DOSE: 3 DOSAGE FORM
     Route: 048
     Dates: start: 20210531
  10. CALCIUM CARBONATE\CHOLECALCIFEROL [Concomitant]
     Active Substance: CALCIUM CARBONATE\CHOLECALCIFEROL
     Dosage: EFFERVESCENT GRANULES FOR DRINKABLE SOLUTION IN SACHET?DAILY DOSE: 1 DOSAGE FORM
     Route: 048
  11. MORPHINE SULFATE [Concomitant]
     Active Substance: MORPHINE SULFATE
     Dosage: DAILY DOSE: 1 DOSAGE FORM
     Route: 048
     Dates: start: 20210530
  12. SKENAN [Concomitant]
     Active Substance: MORPHINE SULFATE
     Dosage: SUSTAINED-RELEASE MICROGRANULES IN CAPSULES?DAILY DOSE: 1 DOSAGE FORM
     Route: 048
     Dates: start: 20210530
  13. PRIMPERAN [Concomitant]
     Active Substance: METOCLOPRAMIDE HYDROCHLORIDE
     Dosage: STRENGTH:10 MG/2 ML, INJECTABLE SOLUTION IN AMPOULE?DAILY DOSE: 3 DOSAGE FORM
     Dates: start: 20210531
  14. LOPERAMIDE HYDROCHLORIDE [Concomitant]
     Active Substance: LOPERAMIDE HYDROCHLORIDE
     Dosage: DAILY DOSE: 2 DOSAGE FORM
     Dates: start: 20210531
  15. ARIXTRA [Concomitant]
     Active Substance: FONDAPARINUX SODIUM

REACTIONS (2)
  - Intestinal ischaemia [Not Recovered/Not Resolved]
  - Aortic thrombosis [Not Recovered/Not Resolved]

NARRATIVE: CASE EVENT DATE: 20210601
